FAERS Safety Report 22778841 (Version 6)
Quarter: 2024Q4

REPORT INFORMATION
  Report Type: Spontaneous
  Country: US (occurrence: US)
  Receive Date: 20230802
  Receipt Date: 20241226
  Transmission Date: 20250114
  Serious: Yes (Hospitalization)
  Sender: PFIZER
  Company Number: US-PFIZER INC-PV202200118060

PATIENT
  Age: 75 Year
  Sex: Male
  Weight: 104.33 kg

DRUGS (6)
  1. BOSULIF [Suspect]
     Active Substance: BOSUTINIB MONOHYDRATE
     Indication: Chronic myeloid leukaemia
     Dosage: 300 MG, 3X/DAY
     Route: 048
  2. BOSULIF [Suspect]
     Active Substance: BOSUTINIB MONOHYDRATE
     Dosage: 3 TABLETS (300 MG) DAILY
     Route: 048
  3. BOSULIF [Suspect]
     Active Substance: BOSUTINIB MONOHYDRATE
     Dosage: 300 MG, DAILY (TAKE 3 TABLETS DAILY)
     Route: 048
  4. BOSULIF [Suspect]
     Active Substance: BOSUTINIB MONOHYDRATE
     Dosage: 100 MG, 1X/DAY (RIGHT NOW HE IS TAKING 100MG A DAY FOR TWO WEEKS)
     Route: 048
     Dates: start: 202307
  5. BOSULIF [Suspect]
     Active Substance: BOSUTINIB MONOHYDRATE
     Dosage: 200 MG, DAILY (TAKE 2 TABLETS (200 MG) DAILY)
     Route: 048
  6. CARVEDILOL [Concomitant]
     Active Substance: CARVEDILOL
     Dosage: UNK
     Dates: start: 202307

REACTIONS (5)
  - Blood pressure decreased [Not Recovered/Not Resolved]
  - Renal failure [Unknown]
  - Blood potassium increased [Unknown]
  - Weight decreased [Recovering/Resolving]
  - Off label use [Unknown]
